FAERS Safety Report 6639258-7 (Version None)
Quarter: 2010Q1

REPORT INFORMATION
  Report Type: 
  Country: None (occurrence: None)
  Receive Date: 20100315
  Receipt Date: 20100301
  Transmission Date: 20100710
  Serious: Yes (Death, Other)
  Sender: FDA-Public Use
  Company Number: KADN20100056

PATIENT
  Age: 31 Year
  Sex: Male

DRUGS (6)
  1. MORPHINE [Suspect]
     Dates: end: 20080101
  2. OXYCODONE HCL [Suspect]
     Dates: end: 20080101
  3. ACETAMINOPHEN/DIPHENHYDRAMINE [Suspect]
     Dates: end: 20080101
  4. ALPRAZOLAM [Suspect]
     Dates: end: 20080101
  5. DIAZEPAM [Suspect]
     Dates: end: 20080101
  6. COCAINE [Suspect]
     Dates: end: 20080101

REACTIONS (4)
  - APNOEA [None]
  - DRUG ABUSE [None]
  - DRUG LEVEL ABOVE THERAPEUTIC [None]
  - PULSE ABSENT [None]
